FAERS Safety Report 15983795 (Version 1)
Quarter: 2019Q1

REPORT INFORMATION
  Report Type: Spontaneous
  Country: DE (occurrence: DE)
  Receive Date: 20190220
  Receipt Date: 20190220
  Transmission Date: 20190418
  Serious: Yes (Other)
  Sender: FDA-Public Use
  Company Number: DE-ACCORD-107885

PATIENT
  Age: 8 Year

DRUGS (3)
  1. PREDNISONE. [Suspect]
     Active Substance: PREDNISONE
     Indication: RENAL TRANSPLANT
     Dosage: 3.0 MG/M2, QD DOSE TAKEN(1 DAYS)
     Route: 065
  2. TACROLIMUS. [Suspect]
     Active Substance: TACROLIMUS
     Indication: RENAL TRANSPLANT
     Dosage: 2.1 MG/M2, QD, 2.9 MG/M2, QD DOSE TAKEN
     Route: 065
  3. TACROLIMUS. [Suspect]
     Active Substance: TACROLIMUS
     Indication: POLYOMAVIRUS-ASSOCIATED NEPHROPATHY
     Dosage: 2.9 MG/M2, QD
     Route: 065

REACTIONS (1)
  - Hepatitis E [Recovered/Resolved]
